FAERS Safety Report 25597134 (Version 1)
Quarter: 2025Q3

REPORT INFORMATION
  Report Type: Spontaneous
  Country: US (occurrence: None)
  Receive Date: 20250722
  Receipt Date: 20250722
  Transmission Date: 20251020
  Serious: Yes (unspecified)
  Sender: FDA-CTU
  Company Number: None

PATIENT
  Sex: Male

DRUGS (1)
  1. HERBALS\TETRAHYDROCANNABIPHOROL [Suspect]
     Active Substance: HERBALS\TETRAHYDROCANNABIPHOROL

REACTIONS (5)
  - Palpitations [None]
  - Panic attack [None]
  - Myocardial infarction [None]
  - Product contamination [None]
  - Refusal of treatment by patient [None]

NARRATIVE: CASE EVENT DATE: 20250618
